FAERS Safety Report 5556942-7 (Version None)
Quarter: 2007Q4

REPORT INFORMATION
  Report Type: 
  Country: None (occurrence: None)
  Receive Date: 20071211
  Receipt Date: 20071211
  Transmission Date: 20080405
  Serious: Yes (Other)
  Sender: FDA-Public Use
  Company Number: None

PATIENT
  Age: 54 Year
  Sex: Female
  Weight: 99.7913 kg

DRUGS (1)
  1. DICLOFENAC SOD 50 MG [Suspect]
     Indication: LIMB INJURY
     Dates: start: 20061227, end: 20070406

REACTIONS (7)
  - DIPLOPIA [None]
  - EYE INJURY [None]
  - FALL [None]
  - LOSS OF CONSCIOUSNESS [None]
  - STOMACH DISCOMFORT [None]
  - TUNNEL VISION [None]
  - VISUAL FIELD DEFECT [None]
